FAERS Safety Report 7423777-X (Version None)
Quarter: 2011Q2

REPORT INFORMATION
  Report Type: 
  Country: None (occurrence: None)
  Receive Date: 20110419
  Receipt Date: 20110413
  Transmission Date: 20111010
  Serious: Yes (Hospitalization)
  Sender: FDA-Public Use
  Company Number: US-B.I. PHARMACEUTICALS,INC./RIDGEFIELD-2011-BP-05756BP

PATIENT
  Age: 80 Year
  Sex: Female

DRUGS (4)
  1. COZAAR [Concomitant]
  2. LIPITOR [Concomitant]
  3. PRADAXA [Suspect]
     Indication: ATRIAL FIBRILLATION
     Dosage: 300 MG
     Dates: start: 20110105, end: 20110221
  4. PRADAXA [Suspect]
     Indication: CEREBROVASCULAR ACCIDENT

REACTIONS (1)
  - EPISTAXIS [None]
